FAERS Safety Report 24222447 (Version 1)
Quarter: 2024Q3

REPORT INFORMATION
  Report Type: Spontaneous
  Country: US (occurrence: US)
  Receive Date: 20240819
  Receipt Date: 20240819
  Transmission Date: 20241017
  Serious: Yes (Other)
  Sender: AMGEN
  Company Number: US-AMGEN-USASP2024162132

PATIENT
  Age: 25 Year
  Sex: Female

DRUGS (5)
  1. KRYSTEXXA [Suspect]
     Active Substance: PEGLOTICASE
     Indication: Gouty tophus
     Dosage: 8 MILLIGRAM, Q2WK
     Route: 065
     Dates: start: 20240528
  2. KRYSTEXXA [Suspect]
     Active Substance: PEGLOTICASE
     Dosage: 1.2 MILLIGRAM, Q2WK
     Route: 065
     Dates: start: 20240814
  3. BENADRYL [Concomitant]
     Active Substance: DIPHENHYDRAMINE HYDROCHLORIDE
     Dosage: 25 MILLIGRAM
     Route: 042
  4. TYLENOL [Concomitant]
     Active Substance: ACETAMINOPHEN
     Dosage: UNK
  5. SOLU-MEDROL [Concomitant]
     Active Substance: METHYLPREDNISOLONE SODIUM SUCCINATE
     Dosage: UNK
     Route: 042

REACTIONS (2)
  - Urticaria [Recovering/Resolving]
  - Adverse reaction [Unknown]

NARRATIVE: CASE EVENT DATE: 20240101
